FAERS Safety Report 21060603 (Version 1)
Quarter: 2022Q3

REPORT INFORMATION
  Report Type: Spontaneous
  Country: US (occurrence: US)
  Receive Date: 20220708
  Receipt Date: 20220708
  Transmission Date: 20221027
  Serious: No
  Sender: FDA-Public Use
  Company Number: US-TEVA-2022-US-2046741

PATIENT

DRUGS (4)
  1. AUSTEDO [Suspect]
     Active Substance: DEUTETRABENAZINE
     Indication: Tic
     Dosage: 18 MILLIGRAM DAILY;
     Route: 065
  2. RISPERIDONE [Suspect]
     Active Substance: RISPERIDONE
     Indication: Tic
     Route: 065
  3. TETRABENAZINE [Suspect]
     Active Substance: TETRABENAZINE
     Indication: Tic
     Route: 065
  4. GUANFACINE [Suspect]
     Active Substance: GUANFACINE
     Indication: Tic
     Dosage: 4 MILLIGRAM DAILY;
     Route: 065

REACTIONS (5)
  - Headache [Unknown]
  - Nightmare [Unknown]
  - Lethargy [Recovering/Resolving]
  - Dry mouth [Recovering/Resolving]
  - Product use in unapproved indication [Unknown]
